FAERS Safety Report 8336010-1 (Version None)
Quarter: 2012Q2

REPORT INFORMATION
  Report Type: 
  Country: None (occurrence: None)
  Receive Date: 20120501
  Receipt Date: 20120501
  Transmission Date: 20120825
  Serious: No
  Sender: FDA-Public Use
  Company Number: None

PATIENT
  Sex: Male
  Weight: 30.5 kg

DRUGS (6)
  1. RASBURICASE [Concomitant]
  2. DAUNORUBICIN HYDROCHLORIDE [Suspect]
     Dosage: 107 MG
     Dates: end: 20120423
  3. PEG-L ASPARAGINASE (K-H) [Suspect]
     Dosage: 1335 IU
     Dates: end: 20120406
  4. PREDNISONE TAB [Suspect]
     Dosage: 1625 MG
     Dates: end: 20120426
  5. AMLODIPINE [Concomitant]
  6. DALTEPARIN SODIUM [Concomitant]

REACTIONS (7)
  - HYPERTENSION [None]
  - TUMOUR LYSIS SYNDROME [None]
  - HYPERTRIGLYCERIDAEMIA [None]
  - HEART RATE INCREASED [None]
  - BLOOD POTASSIUM INCREASED [None]
  - BLOOD UREA INCREASED [None]
  - BLOOD CHOLESTEROL INCREASED [None]
